FAERS Safety Report 22346849 (Version 1)
Quarter: 2023Q2

REPORT INFORMATION
  Report Type: Spontaneous
  Country: US (occurrence: US)
  Receive Date: 20230520
  Receipt Date: 20230520
  Transmission Date: 20230721
  Serious: Yes (Other)
  Sender: FDA-Public Use
  Company Number: US-drreddys-SPO/USA/23/0164981

PATIENT
  Age: 20 Year
  Sex: Female

DRUGS (1)
  1. ZENATANE [Suspect]
     Active Substance: ISOTRETINOIN
     Indication: Product used for unknown indication
     Dosage: RMA ISSUE DATES: 15 MARCH 2023 03:16:26 PM

REACTIONS (3)
  - Mood swings [Unknown]
  - Drug intolerance [Unknown]
  - Photosensitivity reaction [Unknown]
